FAERS Safety Report 9144191 (Version 1)
Quarter: 2013Q1

REPORT INFORMATION
  Report Type: Report from Study
  Country: US (occurrence: US)
  Receive Date: 20130306
  Receipt Date: 20130306
  Transmission Date: 20140127
  Serious: Yes (Hospitalization, Other)
  Sender: FDA-Public Use
  Company Number: US-US-EMD SERONO, INC.-7196642

PATIENT
  Age: 38 Year
  Sex: Female

DRUGS (2)
  1. REBIF [Suspect]
     Indication: MULTIPLE SCLEROSIS
     Route: 058
     Dates: start: 20100504, end: 20120116
  2. REBIF [Suspect]
     Dates: end: 201204

REACTIONS (5)
  - Suicidal behaviour [Recovered/Resolved]
  - Mania [Recovered/Resolved]
  - Depression [Recovered/Resolved]
  - Accidental overdose [Recovered/Resolved]
  - Anxiety [Unknown]
